FAERS Safety Report 6792671-X (Version None)
Quarter: 2010Q2

REPORT INFORMATION
  Report Type: 
  Country: None (occurrence: None)
  Receive Date: 20100624
  Receipt Date: 20080829
  Transmission Date: 20101027
  Serious: No
  Sender: FDA-Public Use
  Company Number: US-PFIZER INC-2008072955

PATIENT
  Sex: Male
  Weight: 178.6 kg

DRUGS (12)
  1. SUTENT [Suspect]
     Indication: RENAL CELL CARCINOMA
     Route: 048
     Dates: start: 20070901
  2. SUTENT [Suspect]
     Indication: METASTASES TO LIVER
  3. ALLOPURINOL [Concomitant]
  4. FUROSEMIDE [Concomitant]
  5. LISINOPRIL [Concomitant]
  6. CARVEDILOL [Concomitant]
  7. PRAVASTATIN [Concomitant]
  8. ACETYLSALICYLIC ACID [Concomitant]
  9. CALCIUM CARBONATE [Concomitant]
  10. FISH OIL [Concomitant]
  11. MULTI-VITAMINS [Concomitant]
  12. NIACIN [Concomitant]

REACTIONS (2)
  - BLISTER [None]
  - HAIR COLOUR CHANGES [None]
